FAERS Safety Report 25967622 (Version 1)
Quarter: 2025Q4

REPORT INFORMATION
  Report Type: Spontaneous
  Country: CN (occurrence: CN)
  Receive Date: 20251028
  Receipt Date: 20251028
  Transmission Date: 20260117
  Serious: Yes (Hospitalization, Other)
  Sender: ABBVIE
  Company Number: CN-ABBVIE-6515641

PATIENT
  Age: 53 Year
  Sex: Male
  Weight: 80 kg

DRUGS (3)
  1. VENCLEXTA [Suspect]
     Active Substance: VENETOCLAX
     Indication: Chemotherapy
     Dosage: FORM STRENGTH- 100 MG
     Route: 048
     Dates: start: 20251004, end: 20251016
  2. CYTARABINE [Suspect]
     Active Substance: CYTARABINE
     Indication: Chemotherapy
     Dosage: CYTARABINE FOR INJECTION 0.019G + SODIUM CHLORIDE INJECTION 1ML WAS SUBCUTANEOUSLY INJECTED Q12H.
     Route: 058
     Dates: start: 20251003, end: 20251016
  3. AZACITIDINE [Suspect]
     Active Substance: AZACITIDINE
     Indication: Chemotherapy
     Dosage: 100 MILLIGRAM
     Route: 058
     Dates: start: 20251003, end: 20251009

REACTIONS (3)
  - Myelosuppression [Unknown]
  - T-cell type acute leukaemia [Unknown]
  - Malignant neoplasm progression [Unknown]

NARRATIVE: CASE EVENT DATE: 20251001
